FAERS Safety Report 21888265 (Version 1)
Quarter: 2023Q1

REPORT INFORMATION
  Report Type: Report from Study
  Country: AU (occurrence: AU)
  Receive Date: 20230120
  Receipt Date: 20230120
  Transmission Date: 20230418
  Serious: Yes (Other)
  Sender: FDA-Public Use
  Company Number: AU-BAYER-2023A004835

PATIENT
  Age: 89 Year
  Sex: Female

DRUGS (1)
  1. EYLEA [Suspect]
     Active Substance: AFLIBERCEPT
     Indication: Neovascular age-related macular degeneration
     Dosage: INTRAVITREAL INJECTION TO LEFT EYE, SOLUTION FOR INJECTION
     Route: 031
     Dates: start: 20220201

REACTIONS (2)
  - Retinal haemorrhage [Recovering/Resolving]
  - Vitreous floaters [Recovered/Resolved]
